FAERS Safety Report 21133257 (Version 21)
Quarter: 2024Q3

REPORT INFORMATION
  Report Type: Report from Study
  Country: US (occurrence: US)
  Receive Date: 20220726
  Receipt Date: 20240709
  Transmission Date: 20241017
  Serious: Yes (Hospitalization, Other)
  Sender: TAKEDA
  Company Number: US-TAKEDA-2021TUS061277

PATIENT
  Age: 45 Year
  Sex: Female
  Weight: 74 kg

DRUGS (8)
  1. LANADELUMAB [Suspect]
     Active Substance: LANADELUMAB
     Indication: Immune system disorder
     Dosage: 300 MILLIGRAM, Q2WEEKS
     Route: 058
     Dates: start: 20210816
  2. LANADELUMAB [Suspect]
     Active Substance: LANADELUMAB
     Dosage: 300 MILLIGRAM, Q2WEEKS
     Route: 058
     Dates: start: 20210818
  3. LANADELUMAB [Suspect]
     Active Substance: LANADELUMAB
     Dosage: 2 MILLILITER, Q2WEEKS
     Route: 058
     Dates: start: 20210819
  4. LANADELUMAB [Suspect]
     Active Substance: LANADELUMAB
     Dosage: 300 MILLIGRAM, Q2WEEKS
     Route: 058
     Dates: start: 20210820
  5. LANADELUMAB [Suspect]
     Active Substance: LANADELUMAB
     Dosage: 300 MILLIGRAM, Q2WEEKS
     Route: 058
     Dates: start: 202108
  6. LANADELUMAB [Suspect]
     Active Substance: LANADELUMAB
     Dosage: 2 MILLILITER, Q2WEEKS
     Route: 058
  7. LANADELUMAB [Suspect]
     Active Substance: LANADELUMAB
     Dosage: UNK UNK, Q2WEEKS
     Route: 058
  8. LANADELUMAB [Suspect]
     Active Substance: LANADELUMAB
     Dosage: 300 MILLIGRAM, Q2WEEKS
     Route: 058

REACTIONS (22)
  - Haematemesis [Unknown]
  - Central nervous system infection [Unknown]
  - Urinary tract infection [Unknown]
  - Malaise [Unknown]
  - Depressed mood [Unknown]
  - Weight decreased [Unknown]
  - Feeding disorder [Unknown]
  - Crying [Unknown]
  - COVID-19 [Recovered/Resolved with Sequelae]
  - Feeling abnormal [Unknown]
  - Hereditary angioedema [Recovered/Resolved]
  - Weight increased [Unknown]
  - Pyrexia [Unknown]
  - Fall [Unknown]
  - Joint swelling [Recovered/Resolved]
  - Breast mass [Unknown]
  - Joint injury [Unknown]
  - Sinusitis [Unknown]
  - Road traffic accident [Unknown]
  - Infusion site haemorrhage [Unknown]
  - Food interaction [Recovered/Resolved]
  - Product dose omission issue [Unknown]

NARRATIVE: CASE EVENT DATE: 20210821
